FAERS Safety Report 8624399-5 (Version None)
Quarter: 2012Q3

REPORT INFORMATION
  Report Type: 
  Country: None (occurrence: None)
  Receive Date: 20120827
  Receipt Date: 20120822
  Transmission Date: 20120928
  Serious: Yes (Hospitalization, Other)
  Sender: FDA-Public Use
  Company Number: US-AMGEN-USASP2012053447

PATIENT
  Age: 66 Year
  Sex: Female
  Weight: 76.644 kg

DRUGS (1)
  1. PROCRIT [Suspect]
     Indication: ANAEMIA
     Dosage: UNK UNK, Q2WK
     Route: 058
     Dates: start: 20010101, end: 20090101

REACTIONS (6)
  - BLOOD COUNT ABNORMAL [None]
  - ALOPECIA [None]
  - DIABETES MELLITUS [None]
  - CORONARY ARTERY OCCLUSION [None]
  - IRON OVERLOAD [None]
  - ANAEMIA [None]
